FAERS Safety Report 9233454 (Version 2)
Quarter: 2013Q2

REPORT INFORMATION
  Report Type: Spontaneous
  Country: JP (occurrence: None)
  Receive Date: 20130412
  Receipt Date: 20130619
  Transmission Date: 20140414
  Serious: Yes (Life-Threatening)
  Sender: FDA-Public Use
  Company Number: TPA2013A02679

PATIENT
  Age: 67 Year
  Sex: Male

DRUGS (7)
  1. FEBURIC [Suspect]
     Indication: HYPERURICAEMIA
     Route: 048
     Dates: start: 20121001, end: 20121029
  2. ATELEC [Suspect]
     Route: 048
     Dates: start: 20120806
  3. LASIX (FUROSEMIDE) [Suspect]
     Indication: HYPERTENSION
     Route: 048
     Dates: start: 20120806
  4. LASIX (FUROSEMIDE) [Suspect]
     Indication: RENAL FAILURE CHRONIC
     Route: 048
     Dates: start: 20120806
  5. ZETIA (EZETIMIBE) [Suspect]
     Indication: HYPERLIPIDAEMIA
     Route: 048
     Dates: start: 20120903
  6. NU-LOTAN (LOSARTAN POTASSIUM) [Concomitant]
  7. PERSANTIN (DIPYRIDAMOLE) [Concomitant]

REACTIONS (1)
  - Renal cell carcinoma recurrent [None]
